FAERS Safety Report 6126675-7 (Version None)
Quarter: 2009Q1

REPORT INFORMATION
  Report Type: 
  Country: None (occurrence: None)
  Receive Date: 20090320
  Receipt Date: 20090305
  Transmission Date: 20090719
  Serious: Yes (Other)
  Sender: FDA-Public Use
  Company Number: US-PFIZER INC-2009181866

PATIENT

DRUGS (1)
  1. NICOTINE [Suspect]
     Dosage: 3 BOTTLES A WEEK, NOW USING 1 A WEEK
     Route: 045

REACTIONS (3)
  - DRUG DEPENDENCE [None]
  - INCORRECT DRUG ADMINISTRATION DURATION [None]
  - OVERDOSE [None]
